FAERS Safety Report 5955474-1 (Version None)
Quarter: 2008Q4

REPORT INFORMATION
  Report Type: 
  Country: None (occurrence: None)
  Receive Date: 20081117
  Receipt Date: 20081110
  Transmission Date: 20090506
  Serious: Yes (Hospitalization)
  Sender: FDA-Public Use
  Company Number: US-GILEAD-2008-0017658

PATIENT
  Sex: Male
  Weight: 95.34 kg

DRUGS (11)
  1. LETAIRIS [Suspect]
     Indication: PULMONARY HYPERTENSION
     Route: 048
     Dates: start: 20080715
  2. LASIX [Concomitant]
  3. LOPRESSOR [Concomitant]
  4. DIAMOX [Concomitant]
  5. FLOMAX [Concomitant]
  6. ZOCOR [Concomitant]
  7. PREDNISONE TAB [Concomitant]
  8. SLOW-MAG [Concomitant]
  9. IRON [Concomitant]
  10. INSULIN [Concomitant]
  11. MUCINEX [Concomitant]

REACTIONS (1)
  - CARDIAC FAILURE CONGESTIVE [None]
